FAERS Safety Report 18071819 (Version 1)
Quarter: 2020Q3

REPORT INFORMATION
  Report Type: Spontaneous
  Country: US (occurrence: US)
  Receive Date: 20200727
  Receipt Date: 20200727
  Transmission Date: 20201103
  Serious: Yes (Hospitalization)
  Sender: FDA-Public Use
  Company Number: US-ELI_LILLY_AND_COMPANY-US202007007376

PATIENT
  Sex: Male

DRUGS (4)
  1. BASAGLAR [Suspect]
     Active Substance: INSULIN GLARGINE
     Dosage: 40 U, DAILY
     Route: 058
  2. BASAGLAR [Suspect]
     Active Substance: INSULIN GLARGINE
     Indication: TYPE 2 DIABETES MELLITUS
     Dosage: 12 U, DAILY
     Route: 058
  3. METFORMIN [Suspect]
     Active Substance: METFORMIN HYDROCHLORIDE
     Indication: DIABETES MELLITUS
     Dosage: UNK UNK, UNKNOWN
     Route: 065
  4. BASAGLAR [Suspect]
     Active Substance: INSULIN GLARGINE
     Dosage: 30 U, DAILY
     Route: 058

REACTIONS (4)
  - Blood glucose increased [Recovered/Resolved]
  - Renal impairment [Unknown]
  - Expired product administered [Unknown]
  - Dizziness [Unknown]
